FAERS Safety Report 5337136-7 (Version None)
Quarter: 2007Q2

REPORT INFORMATION
  Report Type: 
  Country: None (occurrence: None)
  Receive Date: 20070529
  Receipt Date: 20070521
  Transmission Date: 20071010
  Serious: Yes (Hospitalization)
  Sender: FDA-Public Use
  Company Number: US-ASTRAZENECA-2007UW12588

PATIENT
  Age: 62 Year
  Sex: Female

DRUGS (7)
  1. SEROQUEL [Suspect]
     Route: 048
     Dates: start: 20070517, end: 20070517
  2. LEXAPRO [Concomitant]
  3. ABILIFY [Concomitant]
  4. DEPAKOTE [Concomitant]
  5. DILANTIN [Concomitant]
  6. EVISTA [Concomitant]
  7. PHENOBARBITAL TAB [Concomitant]

REACTIONS (3)
  - ACCIDENTAL OVERDOSE [None]
  - DRUG DISPENSING ERROR [None]
  - LETHARGY [None]
